FAERS Safety Report 7443606-8 (Version None)
Quarter: 2011Q2

REPORT INFORMATION
  Report Type: 
  Country: None (occurrence: None)
  Receive Date: 20110428
  Receipt Date: 20110414
  Transmission Date: 20111010
  Serious: Yes (Hospitalization, Other)
  Sender: FDA-Public Use
  Company Number: PHHY2009TW60826

PATIENT
  Sex: Female

DRUGS (2)
  1. ANTIBIOTICS [Concomitant]
  2. GLEEVEC [Suspect]
     Indication: GASTROINTESTINAL STROMAL TUMOUR
     Dosage: 600 MG, UNK
     Route: 048
     Dates: start: 20060615

REACTIONS (6)
  - WOUND COMPLICATION [None]
  - POSTOPERATIVE WOUND COMPLICATION [None]
  - ABDOMINAL PAIN [None]
  - NASOPHARYNGITIS [None]
  - POSTOPERATIVE WOUND INFECTION [None]
  - DIARRHOEA [None]
